FAERS Safety Report 7190130-6 (Version None)
Quarter: 2010Q4

REPORT INFORMATION
  Report Type: 
  Country: None (occurrence: None)
  Receive Date: 20101210
  Receipt Date: 20101129
  Transmission Date: 20110411
  Serious: Yes (Hospitalization)
  Sender: FDA-Public Use
  Company Number: 2010US004828

PATIENT
  Age: 69 Year
  Sex: Female
  Weight: 115 kg

DRUGS (15)
  1. PROGRAF [Suspect]
     Indication: LIVER TRANSPLANT
     Dosage: 3 MG, UID/QD, ORAL
     Route: 048
     Dates: start: 20040914
  2. NOVOLOG [Concomitant]
  3. LANTUS [Concomitant]
  4. CADUET [Concomitant]
  5. LEVAQUIN (LEVOFOXACIN) [Concomitant]
  6. LASIX [Concomitant]
  7. COUMADIN [Concomitant]
  8. PLAVIX [Concomitant]
  9. TRILIPEX (TRILIPEX) [Concomitant]
  10. NEURONTIN [Concomitant]
  11. LABETALOL HCL [Concomitant]
  12. ASPIRIN [Concomitant]
  13. NTG (GLYCERYL TRINITRATE) [Concomitant]
  14. VITARAL (ZINC SULFATE) [Concomitant]
  15. FISH OIL (FISH OIL) [Concomitant]

REACTIONS (3)
  - BLOOD COUNT ABNORMAL [None]
  - DEHYDRATION [None]
  - KIDNEY INFECTION [None]
